FAERS Safety Report 17158937 (Version 1)
Quarter: 2019Q4

REPORT INFORMATION
  Report Type: Spontaneous
  Country: US (occurrence: US)
  Receive Date: 20191214
  Receipt Date: 20191214
  Transmission Date: 20200122
  Serious: Yes (Death)
  Sender: FDA-Public Use
  Company Number: None

PATIENT
  Age: 68 Year
  Sex: Male
  Weight: 146 kg

DRUGS (1)
  1. WARFARIN [Suspect]
     Active Substance: WARFARIN
     Route: 048

REACTIONS (6)
  - Haemoglobin decreased [None]
  - International normalised ratio [None]
  - Gastrointestinal haemorrhage [None]
  - Metastatic neoplasm [None]
  - Atrial fibrillation [None]
  - Pulseless electrical activity [None]

NARRATIVE: CASE EVENT DATE: 20191206
